FAERS Safety Report 5112902-1 (Version None)
Quarter: 2006Q3

REPORT INFORMATION
  Report Type: 
  Country: None (occurrence: None)
  Receive Date: 20060922
  Receipt Date: 20060913
  Transmission Date: 20061208
  Serious: Yes (Other)
  Sender: FDA-Public Use
  Company Number: US-JNJFOC-20050506099

PATIENT
  Sex: Female
  Weight: 102.06 kg

DRUGS (5)
  1. TOPAMAX [Suspect]
     Route: 065
  2. TOPAMAX [Suspect]
     Indication: MIGRAINE
     Dosage: DOSE UNSPECIFIED
     Route: 065
  3. TOPAMAX [Suspect]
     Indication: HEADACHE
     Route: 065
  4. ASPIRIN [Concomitant]
  5. AMOXICILLIN [Concomitant]

REACTIONS (42)
  - ARTHRALGIA [None]
  - BENIGN INTRACRANIAL HYPERTENSION [None]
  - BLOOD CHOLESTEROL INCREASED [None]
  - BLOOD GLUCOSE DECREASED [None]
  - BLOOD GLUCOSE FLUCTUATION [None]
  - BLOOD PRESSURE INCREASED [None]
  - CONTUSION [None]
  - CONVULSION [None]
  - DIARRHOEA [None]
  - DRUG INEFFECTIVE [None]
  - DYSARTHRIA [None]
  - FATIGUE [None]
  - FEELING HOT [None]
  - GAIT DISTURBANCE [None]
  - HAEMORRHAGE [None]
  - HYPERHIDROSIS [None]
  - HYPERSOMNIA [None]
  - HYPERVENTILATION [None]
  - HYPOAESTHESIA [None]
  - HYPOKINESIA [None]
  - IMPAIRED DRIVING ABILITY [None]
  - INJURY [None]
  - LACERATION [None]
  - LOSS OF CONSCIOUSNESS [None]
  - LOW DENSITY LIPOPROTEIN INCREASED [None]
  - MEMORY IMPAIRMENT [None]
  - MIGRAINE [None]
  - MUSCULAR WEAKNESS [None]
  - NAUSEA [None]
  - PAIN [None]
  - ROAD TRAFFIC ACCIDENT [None]
  - SOMNOLENCE [None]
  - SPEECH DISORDER [None]
  - SWELLING [None]
  - SYNCOPE [None]
  - THYROXINE FREE DECREASED [None]
  - TINNITUS [None]
  - TREATMENT NONCOMPLIANCE [None]
  - VISION BLURRED [None]
  - VITAMIN B12 DEFICIENCY [None]
  - VOMITING [None]
  - WEIGHT DECREASED [None]
